FAERS Safety Report 7020716-0 (Version None)
Quarter: 2010Q3

REPORT INFORMATION
  Report Type: 
  Country: None (occurrence: None)
  Receive Date: 20100929
  Receipt Date: 20100924
  Transmission Date: 20110219
  Serious: Yes (Other)
  Sender: FDA-Public Use
  Company Number: US-GILEAD-2010-0032116

PATIENT
  Age: 61 Year
  Sex: Female

DRUGS (9)
  1. LETAIRIS [Suspect]
     Indication: PULMONARY ARTERIAL HYPERTENSION
     Route: 048
     Dates: start: 20100811, end: 20100908
  2. LETAIRIS [Suspect]
     Route: 048
     Dates: start: 20100624, end: 20100810
  3. FUROSEMIDE [Concomitant]
  4. NOVOLIN 70/30 [Concomitant]
  5. LISINOPRIL [Concomitant]
  6. OMEPRAZOLE [Concomitant]
  7. SIMVASTATIN [Concomitant]
  8. METOPROLOL TARTRATE [Concomitant]
  9. GLIPIZIDE [Concomitant]

REACTIONS (2)
  - FATIGUE [None]
  - OEDEMA PERIPHERAL [None]
